FAERS Safety Report 7666660-7 (Version None)
Quarter: 2011Q3

REPORT INFORMATION
  Report Type: 
  Country: None (occurrence: None)
  Receive Date: 20110806
  Receipt Date: 20110629
  Transmission Date: 20111222
  Serious: No
  Sender: FDA-Public Use
  Company Number: US-ABBOTT-11P-163-0835192-00

PATIENT
  Sex: Female
  Weight: 113.5 kg

DRUGS (3)
  1. ASPIRIN [Concomitant]
     Indication: PRODUCT USED FOR UNKNOWN INDICATION
     Dosage: 1/2 PRIOR TO DOSE OF NIASPAN COATED
     Route: 048
  2. NIASPAN [Suspect]
     Dosage: DAILY AT BEDTIME
     Route: 048
  3. NIASPAN [Suspect]
     Indication: PRODUCT USED FOR UNKNOWN INDICATION
     Dosage: DAILY
     Route: 048

REACTIONS (2)
  - PARAESTHESIA [None]
  - FLUSHING [None]
